FAERS Safety Report 8789319 (Version 1)
Quarter: 2012Q4

REPORT INFORMATION
  Report Type: Spontaneous
  Country: US (occurrence: None)
  Receive Date: 20120910
  Receipt Date: 20120910
  Transmission Date: 20130627
  Serious: Yes (Death)
  Sender: FDA-Public Use
  Company Number: None

PATIENT
  Sex: Male
  Weight: 82.1 kg

DRUGS (4)
  1. TREADA [Suspect]
     Indication: LYMPHOMA
     Dates: start: 20120626
  2. TREADA [Suspect]
     Indication: NEOPLASM RECURRENCE
     Dates: start: 20120626
  3. TREADA [Suspect]
     Indication: LYMPHOMA
     Dates: start: 20120627
  4. TREADA [Suspect]
     Indication: NEOPLASM RECURRENCE
     Dates: start: 20120627

REACTIONS (1)
  - Rash generalised [None]
